FAERS Safety Report 16933246 (Version 6)
Quarter: 2022Q3

REPORT INFORMATION
  Report Type: Report from Study
  Country: JP (occurrence: JP)
  Receive Date: 20191018
  Receipt Date: 20220713
  Transmission Date: 20221027
  Serious: Yes (Hospitalization, Other)
  Sender: FDA-Public Use
  Company Number: JP-GLAXOSMITHKLINE-JP2019JPN115191

PATIENT

DRUGS (11)
  1. ABACAVIR SULFATE\LAMIVUDINE [Suspect]
     Active Substance: ABACAVIR SULFATE\LAMIVUDINE
     Indication: HIV infection
     Dosage: 1 DF, 1D
     Route: 048
     Dates: start: 20150512, end: 20190120
  2. JULUCA [Suspect]
     Active Substance: DOLUTEGRAVIR SODIUM\RILPIVIRINE HYDROCHLORIDE
     Indication: HIV infection
     Dosage: 1 DF, 1D
     Route: 048
     Dates: start: 20190121, end: 20190812
  3. JULUCA [Suspect]
     Active Substance: DOLUTEGRAVIR SODIUM\RILPIVIRINE HYDROCHLORIDE
     Dosage: 1 DF, 1D
     Route: 048
     Dates: start: 20191105
  4. EDURANT [Suspect]
     Active Substance: RILPIVIRINE HYDROCHLORIDE
     Indication: HIV infection
     Dosage: 1 DF, 1D
     Route: 048
     Dates: start: 20150512, end: 20190120
  5. RINDERON V [Concomitant]
     Active Substance: BETAMETHASONE VALERATE
     Indication: Seborrhoeic dermatitis
     Dosage: UNK
     Dates: start: 20150807, end: 20151109
  6. NIZORAL [Concomitant]
     Active Substance: KETOCONAZOLE
     Indication: Seborrhoeic dermatitis
     Dosage: UNK
     Dates: start: 20150807, end: 20160802
  7. GLYCOSAMINOGLYCANS [Concomitant]
     Active Substance: GLYCOSAMINOGLYCANS
     Indication: Seborrhoeic dermatitis
     Dosage: UNK
     Dates: start: 20151110
  8. RINDERON V [Concomitant]
     Active Substance: BETAMETHASONE VALERATE
     Indication: Seborrhoeic dermatitis
     Dosage: UNK
     Dates: start: 20151110
  9. CRESTOR [Concomitant]
     Active Substance: ROSUVASTATIN CALCIUM
     Indication: Hyperlipidaemia
     Dosage: UNK
     Dates: start: 20160803
  10. TIVICAY [Concomitant]
     Active Substance: DOLUTEGRAVIR SODIUM
     Indication: HIV infection
     Dosage: 1 DF, 1D
     Route: 048
     Dates: start: 20190813, end: 20191104
  11. DESCOVY [Concomitant]
     Active Substance: EMTRICITABINE\TENOFOVIR ALAFENAMIDE FUMARATE
     Indication: HIV infection
     Dosage: 1 DF, 1D
     Route: 048
     Dates: start: 20190813, end: 20191104

REACTIONS (7)
  - Dyspepsia [Recovering/Resolving]
  - Ureterolithiasis [Recovering/Resolving]
  - Hypertension [Not Recovered/Not Resolved]
  - Abdominal discomfort [Recovering/Resolving]
  - Liver disorder [Recovering/Resolving]
  - Cholelithiasis [Recovering/Resolving]
  - Hyperuricaemia [Not Recovered/Not Resolved]

NARRATIVE: CASE EVENT DATE: 20160215
